FAERS Safety Report 8355030-4 (Version None)
Quarter: 2012Q2

REPORT INFORMATION
  Report Type: 
  Country: None (occurrence: None)
  Receive Date: 20120511
  Receipt Date: 20120504
  Transmission Date: 20120825
  Serious: Yes (Hospitalization, Other)
  Sender: FDA-Public Use
  Company Number: US-TEVA-336944USA

PATIENT
  Sex: Female
  Weight: 79.45 kg

DRUGS (11)
  1. PHENELZINE SULFATE [Suspect]
     Indication: PANIC DISORDER
     Dosage: 45 MILLIGRAM;
     Route: 048
  2. FLUTICASONE PROPIONATE/SALMETEROL [Suspect]
     Indication: ASTHMA
  3. ALPRAZOLAM [Concomitant]
  4. FLUTICASONE PROPIONATE/SALMETEROL [Suspect]
     Indication: BRONCHITIS CHRONIC
  5. PROAIR HFA [Suspect]
     Indication: BRONCHITIS CHRONIC
  6. PROAIR HFA [Suspect]
     Indication: HYPERSENSITIVITY
  7. PROAIR HFA [Suspect]
     Indication: RESPIRATORY ARREST
  8. FLUTICASONE PROPIONATE/SALMETEROL [Suspect]
     Indication: HYPERSENSITIVITY
  9. PHENELZINE SULFATE [Suspect]
     Indication: DEPRESSION
  10. FLUTICASONE PROPIONATE/SALMETEROL [Suspect]
     Indication: RESPIRATORY ARREST
  11. PROAIR HFA [Suspect]
     Indication: ASTHMA

REACTIONS (5)
  - CHRONIC OBSTRUCTIVE PULMONARY DISEASE [None]
  - BLOOD GLUCOSE INCREASED [None]
  - OXYGEN SATURATION DECREASED [None]
  - AMNESIA [None]
  - HYPOTENSION [None]
